FAERS Safety Report 17836152 (Version 1)
Quarter: 2020Q2

REPORT INFORMATION
  Report Type: Spontaneous
  Country: HR (occurrence: HR)
  Receive Date: 20200528
  Receipt Date: 20200528
  Transmission Date: 20200714
  Serious: Yes (Hospitalization)
  Sender: FDA-Public Use
  Company Number: HR-ALLERGAN-2021096US

PATIENT
  Sex: Female

DRUGS (1)
  1. ATROPINE UNK [Suspect]
     Active Substance: ATROPINE SULFATE
     Indication: PRODUCT USED FOR UNKNOWN INDICATION
     Dosage: 0.5 %
     Route: 045
     Dates: start: 202001, end: 202001

REACTIONS (9)
  - Wrong product administered [Unknown]
  - Erythema [Unknown]
  - Agitation [Unknown]
  - Dry mouth [Unknown]
  - Mydriasis [Unknown]
  - Sedation [Unknown]
  - Vomiting [Unknown]
  - Accidental overdose [Unknown]
  - Hallucination [Unknown]

NARRATIVE: CASE EVENT DATE: 202001
